FAERS Safety Report 24281109 (Version 1)
Quarter: 2024Q3

REPORT INFORMATION
  Report Type: Report from Study
  Country: IT (occurrence: IT)
  Receive Date: 20240904
  Receipt Date: 20240904
  Transmission Date: 20241017
  Serious: Yes (Life-Threatening, Other)
  Sender: MYLAN
  Company Number: IT-MYLANLABS-2024M1080732

PATIENT

DRUGS (4)
  1. OXALIPLATIN [Suspect]
     Active Substance: OXALIPLATIN
     Indication: Brain neoplasm
     Dosage: 100 MILLIGRAM/SQ. METER, GIVEN EVERY 14-28?DAYS FOR 1-6?CYCLES
     Route: 065
  2. OXALIPLATIN [Suspect]
     Active Substance: OXALIPLATIN
     Dosage: UNK, THERAPY COMPLETED
     Route: 065
  3. GEMCITABINE [Suspect]
     Active Substance: GEMCITABINE
     Indication: Brain neoplasm
     Dosage: 1000 MILLIGRAM/SQ. METER, GIVEN EVERY 14-28 DAYS FOR 1-6 CYCLES.
     Route: 065
  4. GEMCITABINE [Suspect]
     Active Substance: GEMCITABINE
     Dosage: UNK, THERAPY COMPLETED
     Route: 065

REACTIONS (4)
  - Hyponatraemia [Unknown]
  - Platelet toxicity [Unknown]
  - Hydrocephalus [Unknown]
  - Off label use [Unknown]
